FAERS Safety Report 5905083-5 (Version None)
Quarter: 2008Q4

REPORT INFORMATION
  Report Type: 
  Country: None (occurrence: None)
  Receive Date: 20081001
  Receipt Date: 20080926
  Transmission Date: 20090506
  Serious: Yes (Other)
  Sender: FDA-Public Use
  Company Number: US-CELGENEUS-163-21880-08091522

PATIENT
  Sex: Male

DRUGS (1)
  1. REVLIMID [Suspect]
     Indication: MULTIPLE MYELOMA
     Route: 048
     Dates: start: 20080721

REACTIONS (4)
  - LYMPHADENOPATHY [None]
  - NEUROPATHY PERIPHERAL [None]
  - SKIN LESION [None]
  - TONSILLAR DISORDER [None]
